FAERS Safety Report 23118315 (Version 1)
Quarter: 2023Q4

REPORT INFORMATION
  Report Type: Report from Study
  Country: US (occurrence: US)
  Receive Date: 20231028
  Receipt Date: 20231028
  Transmission Date: 20240110
  Serious: Yes (Hospitalization, Other)
  Sender: FDA-Public Use
  Company Number: US-ABBVIE-5469515

PATIENT
  Sex: Female

DRUGS (2)
  1. RINVOQ [Suspect]
     Active Substance: UPADACITINIB
     Indication: Colitis ulcerative
     Dosage: 1 TABLET BY MOUTH FOR 8 WEEKS , LAST ADMIN DATE: 2023
     Route: 048
     Dates: start: 20230517
  2. RINVOQ [Suspect]
     Active Substance: UPADACITINIB
     Indication: Colitis ulcerative
     Dosage: STRENGTH: 30 MG, FIRST ADMIN DATE: 2023
     Route: 048

REACTIONS (2)
  - Breast cancer female [Unknown]
  - Pleural effusion [Unknown]

NARRATIVE: CASE EVENT DATE: 20230101
